FAERS Safety Report 9540053 (Version 3)
Quarter: 2013Q4

REPORT INFORMATION
  Report Type: Spontaneous
  Country: JP (occurrence: JP)
  Receive Date: 20130920
  Receipt Date: 20131023
  Transmission Date: 20140711
  Serious: Yes (Life-Threatening)
  Sender: FDA-Public Use
  Company Number: JP-B.I. PHARMACEUTICALS,INC./RIDGEFIELD-2013-BI-29373NB

PATIENT
  Age: 71 Year
  Sex: Female

DRUGS (5)
  1. PRAZAXA [Suspect]
     Indication: ATRIAL FIBRILLATION
     Dosage: 220 MG
     Route: 048
     Dates: start: 20121225, end: 20130604
  2. LASIX/FUROSEMIDE [Concomitant]
     Indication: HYPERTENSION
     Dosage: 20 MG
     Route: 048
     Dates: start: 20121225
  3. ALDACTONE A/ SPIRONOLACTONE [Concomitant]
     Indication: HYPERTENSION
     Dosage: 25 MG
     Route: 048
     Dates: start: 20121225
  4. DIART/AZOSEMIDE [Concomitant]
     Indication: HYPERTENSION
     Dosage: 30 MG
     Route: 048
     Dates: start: 20121225
  5. NEXIUM/ESOMEPRAZOLE MAGNESIUM HYDRATE [Concomitant]
     Dosage: 20 MG
     Route: 048
     Dates: start: 20121225

REACTIONS (2)
  - Atrial thrombosis [Recovered/Resolved]
  - Drug ineffective [Unknown]
